FAERS Safety Report 7986865-5 (Version None)
Quarter: 2011Q4

REPORT INFORMATION
  Report Type: 
  Country: None (occurrence: None)
  Receive Date: 20111216
  Receipt Date: 20110225
  Transmission Date: 20120403
  Serious: No
  Sender: FDA-Public Use
  Company Number: US-BRISTOL-MYERS SQUIBB COMPANY-15579600

PATIENT
  Sex: Male

DRUGS (2)
  1. ZYPREXA [Suspect]
  2. ABILIFY [Suspect]
     Indication: AUTISM
     Route: 048

REACTIONS (1)
  - AGGRESSION [None]
